FAERS Safety Report 5799830-3 (Version None)
Quarter: 2008Q3

REPORT INFORMATION
  Report Type: 
  Country: None (occurrence: None)
  Receive Date: 20080702
  Receipt Date: 20080702
  Transmission Date: 20090109
  Serious: Yes (Other)
  Sender: FDA-Public Use
  Company Number: None

PATIENT
  Age: 48 Year
  Sex: Male

DRUGS (1)
  1. DIGITEK BERTEK [Suspect]
     Dosage: 0.25MG ONCE DAILY

REACTIONS (10)
  - DIARRHOEA [None]
  - FLUID RETENTION [None]
  - HALO VISION [None]
  - HEART RATE DECREASED [None]
  - MITRAL VALVE INCOMPETENCE [None]
  - NAUSEA [None]
  - PHARMACEUTICAL PRODUCT COMPLAINT [None]
  - VISION BLURRED [None]
  - VISUAL IMPAIRMENT [None]
  - VOMITING [None]
